FAERS Safety Report 7491648-9 (Version None)
Quarter: 2011Q2

REPORT INFORMATION
  Report Type: 
  Country: None (occurrence: None)
  Receive Date: 20110519
  Receipt Date: 20110513
  Transmission Date: 20111010
  Serious: Yes (Other)
  Sender: FDA-Public Use
  Company Number: FR-PFIZER INC-2011102805

PATIENT
  Age: 85 Year
  Sex: Female

DRUGS (11)
  1. DIGOXIN [Concomitant]
  2. PARACETAMOL [Concomitant]
  3. VASTAREL [Concomitant]
     Dosage: 35 MG
  4. AUGMENTIN [Suspect]
     Indication: CYSTITIS ESCHERICHIA
     Dosage: UNK
     Route: 048
     Dates: start: 20110310, end: 20110314
  5. LOVENOX [Concomitant]
  6. CORDARONE [Suspect]
     Indication: ATRIAL FIBRILLATION
     Dosage: UNK
     Route: 048
     Dates: start: 20110310, end: 20110314
  7. EDUCTYL [Concomitant]
  8. CORDARONE [Suspect]
     Dosage: UNK
     Dates: start: 20110324
  9. ADANCOR [Concomitant]
  10. ATORVASTATIN CALCIUM [Suspect]
     Indication: DYSLIPIDAEMIA
     Dosage: 40 MG
     Route: 048
     Dates: start: 20110307, end: 20110312
  11. ASPIRIN [Concomitant]
     Dosage: UNK
     Dates: start: 20110308

REACTIONS (2)
  - CHOLESTASIS [None]
  - HEPATITIS [None]
